FAERS Safety Report 19831134 (Version 2)
Quarter: 2021Q4

REPORT INFORMATION
  Report Type: Report from Study
  Country: US (occurrence: US)
  Receive Date: 20210915
  Receipt Date: 20211109
  Transmission Date: 20220303
  Serious: No
  Sender: FDA-Public Use
  Company Number: US-BRISTOL-MYERS SQUIBB COMPANY-BMS-2021-091879

PATIENT
  Age: 14 Year
  Sex: Male

DRUGS (4)
  1. ABATACEPT [Suspect]
     Active Substance: ABATACEPT
     Indication: Mixed connective tissue disease
     Dosage: 125 MILLIGRAM, QWK
     Route: 058
     Dates: start: 20210904
  2. ABATACEPT [Suspect]
     Active Substance: ABATACEPT
     Indication: Mixed connective tissue disease
     Dosage: 125 MILLIGRAM, QWK
     Route: 058
     Dates: start: 20210904
  3. ABATACEPT [Suspect]
     Active Substance: ABATACEPT
     Indication: Rheumatoid arthritis
  4. ABATACEPT [Suspect]
     Active Substance: ABATACEPT
     Indication: Rheumatoid arthritis

REACTIONS (1)
  - Syringe issue [Unknown]
